FAERS Safety Report 8401839-8 (Version None)
Quarter: 2012Q2

REPORT INFORMATION
  Report Type: 
  Country: None (occurrence: None)
  Receive Date: 20120601
  Receipt Date: 20120524
  Transmission Date: 20120825
  Serious: Yes (Hospitalization, Other)
  Sender: FDA-Public Use
  Company Number: US-JNJFOC-20120518801

PATIENT
  Sex: Female
  Weight: 81.65 kg

DRUGS (9)
  1. ELMIRON [Suspect]
     Route: 048
     Dates: start: 20090101
  2. AMBIEN [Concomitant]
     Indication: SLEEP DISORDER
     Route: 048
  3. CITALOPRAM [Concomitant]
     Indication: DEPRESSION
     Route: 048
  4. ELMIRON [Suspect]
     Indication: CYSTITIS INTERSTITIAL
     Route: 048
  5. ESTROGEN [Concomitant]
     Indication: HORMONE REPLACEMENT THERAPY
     Route: 048
  6. LEVOTHYROXINE SODIUM [Concomitant]
     Indication: THYROID DISORDER
     Route: 048
  7. MOEXIPRIL HYDROCHLORIDE [Concomitant]
     Indication: BLOOD PRESSURE
     Route: 048
  8. OMEPRAZOLE [Concomitant]
     Indication: GASTROOESOPHAGEAL REFLUX DISEASE
     Route: 065
  9. CIPROFLOXACIN HCL [Concomitant]
     Indication: BLADDER DISORDER
     Route: 065

REACTIONS (5)
  - CHOLELITHIASIS [None]
  - HOSPITALISATION [None]
  - INTENTIONAL DRUG MISUSE [None]
  - POST PROCEDURAL COMPLICATION [None]
  - BLADDER PAIN [None]
